FAERS Safety Report 9376057 (Version 1)
Quarter: 2013Q2

REPORT INFORMATION
  Report Type: Spontaneous
  Country: US (occurrence: None)
  Receive Date: 20130628
  Receipt Date: 20130628
  Transmission Date: 20140414
  Serious: Yes (Life-Threatening)
  Sender: FDA-Public Use
  Company Number: None

PATIENT
  Age: 11 Year
  Sex: Male
  Weight: 37.7 kg

DRUGS (1)
  1. RABIES IMMUNOGLOBIN [Suspect]
     Indication: RABIES IMMUNISATION
     Dosage: 750 UNITS ONCE IM
     Route: 030
     Dates: start: 20130610

REACTIONS (7)
  - Vomiting [None]
  - Erythema [None]
  - Dyskinesia [None]
  - Throat tightness [None]
  - Pallor [None]
  - Urticaria [None]
  - Oxygen saturation decreased [None]
